FAERS Safety Report 13302984 (Version 2)
Quarter: 2017Q2

REPORT INFORMATION
  Report Type: Spontaneous
  Country: ES (occurrence: ES)
  Receive Date: 20170307
  Receipt Date: 20170517
  Transmission Date: 20170830
  Serious: Yes (Other)
  Sender: FDA-Public Use
  Company Number: ES-PFIZER INC-2017095925

PATIENT
  Age: 83 Year
  Weight: 53 kg

DRUGS (7)
  1. ORFIDAL [Suspect]
     Active Substance: LORAZEPAM
     Indication: INSOMNIA
     Dosage: 1 MG, 1X/DAY
     Route: 065
     Dates: start: 20170131, end: 20170131
  2. SERC [Concomitant]
     Active Substance: BETAHISTINE HYDROCHLORIDE
     Indication: VERTIGO
     Dosage: 16 MG, 2X/DAY
     Dates: end: 20170208
  3. SPIRIVA [Concomitant]
     Active Substance: TIOTROPIUM BROMIDE MONOHYDRATE
     Indication: PNEUMONIA
     Dosage: 18 UG, 1X/DAY
     Dates: start: 2015
  4. ZALDIAR [Suspect]
     Active Substance: ACETAMINOPHEN\TRAMADOL HYDROCHLORIDE
     Indication: PAIN
     Dosage: 1 TABLET (37.5 MG/ 325 MG FILM COATED TABLET) AT NOON 2 TABLETS AT NIGHT, ONE DAY
     Route: 048
     Dates: start: 20170131, end: 20170131
  5. DOXAZOSIN RATIOPHARM [Concomitant]
     Indication: HYPERTENSION
     Dosage: 2 MG, 1X/DAY
  6. COAPROVEL [Concomitant]
     Active Substance: HYDROCHLOROTHIAZIDE\IRBESARTAN
     Indication: HYPERTENSION
     Dosage: 300 MG /12.5 MG, 1X/DAY
  7. TRYPTIZOL [Suspect]
     Active Substance: AMITRIPTYLINE HYDROCHLORIDE
     Indication: ANXIETY
     Dosage: 5 MG, 1X/DAY
     Route: 065
     Dates: start: 20170123, end: 20170201

REACTIONS (5)
  - Fatigue [Recovering/Resolving]
  - Loss of consciousness [Recovering/Resolving]
  - Depressed mood [Recovering/Resolving]
  - Mobility decreased [Recovering/Resolving]
  - Purpura [Unknown]

NARRATIVE: CASE EVENT DATE: 201702
